FAERS Safety Report 17189871 (Version 1)
Quarter: 2019Q4

REPORT INFORMATION
  Report Type: Report from Study
  Country: FR (occurrence: FR)
  Receive Date: 20191223
  Receipt Date: 20191223
  Transmission Date: 20200122
  Serious: Yes (Other)
  Sender: FDA-Public Use
  Company Number: FR-BRISTOL-MYERS SQUIBB COMPANY-BMS-2019-120964

PATIENT
  Age: 88 Year
  Sex: Female

DRUGS (3)
  1. TAHOR [Concomitant]
     Active Substance: ATORVASTATIN CALCIUM
     Indication: CORONARY ARTERY DISEASE
     Dosage: 40 MILLIGRAM, DAILY DOSAGE
     Route: 048
  2. APIXABAN [Suspect]
     Active Substance: APIXABAN
     Indication: PRODUCT USED FOR UNKNOWN INDICATION
     Dosage: 5 MILLIGRAM, DAILY DOSAGE
     Route: 048
     Dates: start: 20190618
  3. GAVISCON [ALGINIC ACID;ALUMINIUM HYDROXIDE] [Concomitant]
     Active Substance: ALGINIC ACID\ALUMINUM HYDROXIDE
     Indication: GASTROOESOPHAGEAL REFLUX DISEASE
     Dosage: 1500 MILLIGRAM, DAILY DOSAGE
     Route: 048

REACTIONS (4)
  - Head injury [Unknown]
  - Ecchymosis [Recovered/Resolved]
  - Fall [Unknown]
  - Epistaxis [Recovered/Resolved]

NARRATIVE: CASE EVENT DATE: 20191120
